FAERS Safety Report 4519363-1 (Version None)
Quarter: 2004Q4

REPORT INFORMATION
  Report Type: 
  Country: None (occurrence: None)
  Receive Date: 20041202
  Receipt Date: 20041119
  Transmission Date: 20050328
  Serious: Yes (Hospitalization)
  Sender: FDA-Public Use
  Company Number: 2004095210

PATIENT
  Age: 68 Year
  Sex: Male

DRUGS (9)
  1. TOLTERODINE LA (TOLTERODINE) [Suspect]
     Indication: POLLAKIURIA
     Dosage: 4 MG, ORAL
     Route: 048
     Dates: start: 20040607
  2. DONEPREZIL (DONEPREZIL) [Concomitant]
     Indication: COGNITIVE DISORDER
     Dosage: SEE IMAGE
     Route: 048
     Dates: start: 20040331
  3. DONEPREZIL (DONEPREZIL) [Concomitant]
     Indication: COGNITIVE DISORDER
     Dosage: SEE IMAGE
     Route: 048
     Dates: start: 20040607
  4. ACETYLSALICYLIC ACID SRT [Concomitant]
  5. CASODEX [Concomitant]
  6. FLUXETINE (FLUXETINE) [Concomitant]
  7. TYLENOL [Concomitant]
  8. MEGESTROL ACETATE [Concomitant]
  9. METOPROLOL SUCCINATE [Concomitant]

REACTIONS (1)
  - VENTRICULAR TACHYCARDIA [None]
